FAERS Safety Report 4993766-3 (Version None)
Quarter: 2006Q2

REPORT INFORMATION
  Report Type: 
  Country: None (occurrence: None)
  Receive Date: 20060505
  Receipt Date: 20050928
  Transmission Date: 20061013
  Serious: Yes (Hospitalization)
  Sender: FDA-Public Use
  Company Number: US-MERCK-0509USA04441

PATIENT
  Age: 49 Year
  Sex: Female
  Weight: 175 kg

DRUGS (11)
  1. VIOXX [Suspect]
     Indication: BACK PAIN
     Route: 048
     Dates: start: 19990101, end: 20040101
  2. DIGOXIN [Concomitant]
     Route: 065
  3. FLOVENT [Concomitant]
     Route: 065
  4. ALBUTEROL [Concomitant]
     Route: 065
  5. MONOPRIL [Concomitant]
     Route: 065
  6. DIABETA [Concomitant]
     Route: 065
  7. WARFARIN [Concomitant]
     Route: 065
  8. NITROGLYCERIN [Concomitant]
     Route: 065
  9. [THERAPY UNSPECIFIED] [Concomitant]
     Route: 065
  10. IRON (UNSPECIFIED) [Concomitant]
     Route: 065
  11. CALCIUM (UNSPECIFIED) [Concomitant]
     Route: 065

REACTIONS (13)
  - ADVERSE EVENT [None]
  - CARDIAC DISORDER [None]
  - CARDIAC FAILURE CONGESTIVE [None]
  - CARDIOMEGALY [None]
  - CHEST PAIN [None]
  - DYSPNOEA [None]
  - GASTROOESOPHAGEAL REFLUX DISEASE [None]
  - HEART RATE ABNORMAL [None]
  - HYPERTENSION [None]
  - LUNG DISORDER [None]
  - OBESITY [None]
  - PALPITATIONS [None]
  - RENAL DISORDER [None]
